FAERS Safety Report 11970074 (Version 1)
Quarter: 2016Q1

REPORT INFORMATION
  Report Type: Spontaneous
  Country: US (occurrence: US)
  Receive Date: 20160128
  Receipt Date: 20160128
  Transmission Date: 20160526
  Serious: No
  Sender: FDA-Public Use
  Company Number: US-COVIS PHARMA S.A.R.L.-2015COV00134

PATIENT
  Age: 26 Year
  Sex: Female

DRUGS (2)
  1. CITALOPRAM [Concomitant]
     Active Substance: CITALOPRAM HYDROBROMIDE
  2. RILUZOLE. [Suspect]
     Active Substance: RILUZOLE
     Indication: MANIA
     Dosage: UNK
     Dates: start: 19990502

REACTIONS (5)
  - Crying [Unknown]
  - Impulsive behaviour [Unknown]
  - Depressed mood [Unknown]
  - Mania [Unknown]
  - Off label use [Not Recovered/Not Resolved]

NARRATIVE: CASE EVENT DATE: 19990502
